FAERS Safety Report 4545341-2 (Version None)
Quarter: 2005Q1

REPORT INFORMATION
  Report Type: 
  Country: None (occurrence: None)
  Receive Date: 20050105
  Receipt Date: 20041215
  Transmission Date: 20050727
  Serious: Yes (Death)
  Sender: FDA-Public Use
  Company Number: 2004-DE-05126BY(4)

PATIENT
  Age: 71 Year
  Sex: Male

DRUGS (16)
  1. ATROVENT [Suspect]
     Indication: PNEUMONIA
     Dosage: IH
     Route: 055
     Dates: start: 20040401, end: 20040401
  2. AVELOX [Suspect]
     Indication: PNEUMONIA
     Dosage: 400 MG, IV
     Route: 042
     Dates: start: 20040401, end: 20040401
  3. ALBUTEROL [Suspect]
     Indication: PNEUMONIA
     Dosage: 2.5 MG, IH
     Route: 055
     Dates: start: 20040401, end: 20040401
  4. ROCEPHIN [Suspect]
     Indication: PNEUMONIA
     Dosage: 1 G, IV
     Route: 042
     Dates: start: 20040401, end: 20040401
  5. TYLENOL [Suspect]
     Dosage: 650 MG PRN, PO
     Route: 048
     Dates: start: 20040401
  6. FLOMAX [Suspect]
     Indication: BENIGN PROSTATIC HYPERPLASIA
     Dosage: 0.4 MG, PO
     Route: 048
     Dates: start: 20040331
  7. LISINOPRIL [Concomitant]
  8. HYDROCHLOROTHIAZIDE [Concomitant]
  9. COUMADIN [Suspect]
  10. ATENOLOL [Concomitant]
  11. BCG [Concomitant]
  12. ATROVENT [Concomitant]
  13. SEREVENT [Concomitant]
  14. AZMACORT [Concomitant]
  15. FLOMAX [Concomitant]
  16. MULTI-VITAMINS [Concomitant]

REACTIONS (25)
  - ACUTE PULMONARY OEDEMA [None]
  - APNOEA [None]
  - ATRIAL FIBRILLATION [None]
  - BLOOD PRESSURE DIASTOLIC INCREASED [None]
  - BRADYCARDIA [None]
  - CARDIAC FAILURE CONGESTIVE [None]
  - CARDIO-RESPIRATORY ARREST [None]
  - CHRONIC OBSTRUCTIVE PULMONARY DISEASE [None]
  - COMA [None]
  - CONFUSIONAL STATE [None]
  - CYANOSIS [None]
  - ELECTROCARDIOGRAM QRS COMPLEX ABNORMAL [None]
  - ELECTROCARDIOGRAM QT CORRECTED INTERVAL PROLONGED [None]
  - ELECTROMECHANICAL DISSOCIATION [None]
  - FAECAL INCONTINENCE [None]
  - GENERAL PHYSICAL HEALTH DETERIORATION [None]
  - HAEMOPTYSIS [None]
  - HYPERHIDROSIS [None]
  - PNEUMONIA [None]
  - PULMONARY EMBOLISM [None]
  - PUPIL FIXED [None]
  - RALES [None]
  - RENAL FAILURE [None]
  - SEPSIS [None]
  - TACHYCARDIA [None]
